FAERS Safety Report 4602935-3 (Version None)
Quarter: 2005Q1

REPORT INFORMATION
  Report Type: 
  Country: None (occurrence: None)
  Receive Date: 20050307
  Receipt Date: 20050211
  Transmission Date: 20050727
  Serious: Yes (Other)
  Sender: FDA-Public Use
  Company Number: 2005032468

PATIENT
  Age: 73 Year
  Sex: Female

DRUGS (2)
  1. METHYLPREDNISOLONE SODIUM SUCCINATE [Suspect]
     Indication: INFLAMMATORY BOWEL DISEASE
     Dosage: 1 GRAM
     Dates: start: 20050202
  2. METHYLPREDNISOLONE SODIUM SUCCINATE [Suspect]

REACTIONS (5)
  - DISORIENTATION [None]
  - FATIGUE [None]
  - HEADACHE [None]
  - HYPERHIDROSIS [None]
  - HYPOTENSION [None]
